FAERS Safety Report 5629383-1 (Version None)
Quarter: 2008Q1

REPORT INFORMATION
  Report Type: 
  Country: None (occurrence: None)
  Receive Date: 20080218
  Receipt Date: 20080212
  Transmission Date: 20080703
  Serious: Yes (Other)
  Sender: FDA-Public Use
  Company Number: B0507493A

PATIENT
  Age: 11 Year
  Sex: Male
  Weight: 47 kg

DRUGS (4)
  1. RELENZA [Suspect]
     Indication: INFLUENZA
     Dosage: 10MG TWICE PER DAY
     Route: 055
     Dates: start: 20080205, end: 20080205
  2. KLARICID [Concomitant]
     Indication: INFLUENZA
     Dosage: 200MG TWICE PER DAY
     Route: 048
     Dates: start: 20080205
  3. TRANSAMIN [Concomitant]
     Indication: INFLUENZA
     Dosage: 250MG THREE TIMES PER DAY
     Route: 048
     Dates: start: 20080205
  4. MUCOTRON [Concomitant]
     Indication: INFLUENZA
     Dosage: 500MG THREE TIMES PER DAY
     Route: 048
     Dates: start: 20080205

REACTIONS (4)
  - ABNORMAL BEHAVIOUR [None]
  - AGGRESSION [None]
  - AGITATION [None]
  - FEAR [None]
